FAERS Safety Report 11609990 (Version 1)
Quarter: 2015Q3

REPORT INFORMATION
  Report Type: Spontaneous
  Country: US (occurrence: US)
  Receive Date: 20150916
  Receipt Date: 20150916
  Transmission Date: 20151125
  Serious: No
  Sender: FDA-Public Use
  Company Number: US-ELI_LILLY_AND_COMPANY-US201308002472

PATIENT
  Sex: Male

DRUGS (2)
  1. HUMALOG MIX75/25 [Suspect]
     Active Substance: INSULIN LISPRO
     Dosage: 25 U, BID (MORNING AND NIGHT)
  2. HUMALOG MIX75/25 [Suspect]
     Active Substance: INSULIN LISPRO
     Indication: DIABETES MELLITUS
     Dosage: 25 U, BID (MORNING AND NIGHT)

REACTIONS (6)
  - Blood glucose decreased [Unknown]
  - Dizziness [Unknown]
  - Asthenia [Unknown]
  - Hearing impaired [Unknown]
  - Injection site pain [Unknown]
  - Tremor [Unknown]
